FAERS Safety Report 7148951-1 (Version None)
Quarter: 2010Q4

REPORT INFORMATION
  Report Type: 
  Country: None (occurrence: None)
  Receive Date: 20101209
  Receipt Date: 20101206
  Transmission Date: 20110411
  Serious: Yes (Hospitalization)
  Sender: FDA-Public Use
  Company Number: B0687297A

PATIENT
  Sex: Male

DRUGS (4)
  1. CLAMOXYL [Suspect]
     Indication: ERYSIPELAS
     Dosage: 1G THREE TIMES PER DAY
     Route: 048
     Dates: start: 20101109, end: 20101112
  2. PARACETAMOL [Concomitant]
     Dosage: 1G FOUR TIMES PER DAY
     Route: 048
     Dates: start: 20101109
  3. LOVENOX [Concomitant]
     Dosage: .8ML TWICE PER DAY
     Route: 058
     Dates: start: 20101109, end: 20101115
  4. STAGID [Concomitant]
     Dosage: 700MG PER DAY
     Route: 048
     Dates: start: 20101109

REACTIONS (3)
  - ERYTHEMA [None]
  - PRURITUS [None]
  - PYREXIA [None]
